FAERS Safety Report 10290191 (Version 2)
Quarter: 2015Q1

REPORT INFORMATION
  Report Type: Spontaneous
  Country: US (occurrence: US)
  Receive Date: 20140710
  Receipt Date: 20150105
  Transmission Date: 20150720
  Serious: Yes (Other)
  Sender: FDA-Public Use
  Company Number: US-BAYER-2014-102783

PATIENT
  Age: 41 Year
  Sex: Male

DRUGS (2)
  1. BETASERON [Suspect]
     Active Substance: INTERFERON BETA-1B
     Indication: MULTIPLE SCLEROSIS
     Dosage: STANDARD TITRATION DOSE, QOD
     Route: 058
     Dates: start: 1996, end: 1996
  2. BETASERON [Suspect]
     Active Substance: INTERFERON BETA-1B
     Indication: MULTIPLE SCLEROSIS
     Dosage: 0.25 MG, QOD
     Route: 058
     Dates: start: 1996

REACTIONS (7)
  - Multiple sclerosis relapse [None]
  - Influenza like illness [None]
  - Gait disturbance [None]
  - Injection site erythema [None]
  - Injection site irritation [None]
  - Coordination abnormal [None]
  - Headache [None]

NARRATIVE: CASE EVENT DATE: 1996
